FAERS Safety Report 6849528-5 (Version None)
Quarter: 2010Q3

REPORT INFORMATION
  Report Type: 
  Country: None (occurrence: None)
  Receive Date: 20100716
  Receipt Date: 20071217
  Transmission Date: 20110219
  Serious: No
  Sender: FDA-Public Use
  Company Number: US-PFIZER INC-2007082487

PATIENT
  Sex: Male
  Weight: 72.7 kg

DRUGS (5)
  1. CHANTIX [Suspect]
     Indication: SMOKING CESSATION THERAPY
     Route: 048
     Dates: start: 20070601, end: 20070801
  2. TRIZIVIR [Concomitant]
     Indication: HIV INFECTION
     Route: 048
  3. ADDERALL XR 10 [Concomitant]
     Route: 048
  4. SEROSTIM [Concomitant]
     Route: 058
  5. IBUPROFEN [Concomitant]
     Route: 048

REACTIONS (4)
  - AGGRESSION [None]
  - ANGER [None]
  - EMOTIONAL DISORDER [None]
  - IRRITABILITY [None]
